FAERS Safety Report 5407518-3 (Version None)
Quarter: 2007Q3

REPORT INFORMATION
  Report Type: 
  Country: None (occurrence: None)
  Receive Date: 20070713
  Receipt Date: 20070404
  Transmission Date: 20080115
  Serious: Yes (Hospitalization)
  Sender: FDA-Public Use
  Company Number: US-JNJFOC-20060105397

PATIENT
  Age: 22 Year
  Sex: Female
  Weight: 67.586 kg

DRUGS (6)
  1. ORTHO EVRA [Suspect]
     Indication: DRUG USE FOR UNKNOWN INDICATION
     Dosage: TRANSDERMAL
     Route: 062
     Dates: start: 20030101
  2. BENTYL [Concomitant]
  3. SYNTHROID [Concomitant]
  4. ALESSE (EUGYNON) [Concomitant]
  5. ADVAIR DISKUS 100/50 [Concomitant]
  6. ZYRTEC [Concomitant]

REACTIONS (1)
  - DEEP VEIN THROMBOSIS [None]
